FAERS Safety Report 9106381 (Version 2)
Quarter: 2013Q2

REPORT INFORMATION
  Report Type: Spontaneous
  Country: DE (occurrence: DE)
  Receive Date: 20130221
  Receipt Date: 20130508
  Transmission Date: 20140414
  Serious: Yes (Death, Hospitalization)
  Sender: FDA-Public Use
  Company Number: DE-ROCHE-1190617

PATIENT
  Age: 70 Year
  Sex: Male

DRUGS (3)
  1. RITUXIMAB [Suspect]
     Indication: NON-HODGKIN^S LYMPHOMA
     Dosage: 6 CYCLES OF R-BENDAMUSTINE CHEMOTHERAPY
     Route: 065
  2. RITUXIMAB [Suspect]
     Dosage: 4 CYCLES OF RITUXIMAB MAINTENANCE
     Route: 065
  3. BENDAMUSTINE [Concomitant]
     Indication: NON-HODGKIN^S LYMPHOMA

REACTIONS (2)
  - Pneumonia [Fatal]
  - Progressive multifocal leukoencephalopathy [Recovering/Resolving]
